FAERS Safety Report 25408068 (Version 1)
Quarter: 2025Q2

REPORT INFORMATION
  Report Type: Report from Study
  Country: IN (occurrence: IN)
  Receive Date: 20250606
  Receipt Date: 20250606
  Transmission Date: 20250716
  Serious: Yes (Death)
  Sender: DAIICHI
  Company Number: IN-AstraZeneca-CH-00882322A

PATIENT
  Sex: Male
  Weight: 68 kg

DRUGS (1)
  1. ENHERTU [Suspect]
     Active Substance: FAM-TRASTUZUMAB DERUXTECAN-NXKI
     Indication: Adenocarcinoma
     Dosage: 400 MG, ONCE EVERY 3 WK
     Route: 041

REACTIONS (2)
  - Dyspnoea [Fatal]
  - Viral infection [Fatal]
